FAERS Safety Report 23963833 (Version 1)
Quarter: 2024Q2

REPORT INFORMATION
  Report Type: Spontaneous
  Country: US (occurrence: US)
  Receive Date: 20240611
  Receipt Date: 20240611
  Transmission Date: 20240715
  Serious: No
  Sender: FDA-Public Use
  Company Number: US-RIGEL Pharmaceuticals, INC-2023FOS000918

PATIENT
  Age: 69 Year
  Sex: Female
  Weight: 90.703 kg

DRUGS (1)
  1. TAVALISSE [Suspect]
     Active Substance: FOSTAMATINIB
     Indication: Immune thrombocytopenia
     Dosage: 100 MG, BID
     Route: 048
     Dates: start: 20230405

REACTIONS (4)
  - Fall [Unknown]
  - Head injury [Unknown]
  - Platelet count [Unknown]
  - Injury [Unknown]

NARRATIVE: CASE EVENT DATE: 20230901
